FAERS Safety Report 15518636 (Version 1)
Quarter: 2018Q4

REPORT INFORMATION
  Report Type: Spontaneous
  Country: DE (occurrence: DE)
  Receive Date: 20181017
  Receipt Date: 20181017
  Transmission Date: 20190205
  Serious: No
  Sender: FDA-Public Use
  Company Number: DE-B. BRAUN MEDICAL INC.-2056305

PATIENT
  Sex: Male

DRUGS (1)
  1. 20% MANNITOL INJECTION USP 0264-7578-10 0264-7578-20 [Suspect]
     Active Substance: MANNITOL

REACTIONS (2)
  - Extravasation [None]
  - Injection site pain [None]
